FAERS Safety Report 13299426 (Version 2)
Quarter: 2017Q2

REPORT INFORMATION
  Report Type: Spontaneous
  Country: US (occurrence: US)
  Receive Date: 20170306
  Receipt Date: 20170613
  Transmission Date: 20170830
  Serious: Yes (Hospitalization, Other)
  Sender: FDA-Public Use
  Company Number: US-PFIZER INC-2017093917

PATIENT
  Age: 48 Year
  Sex: Male
  Weight: 70 kg

DRUGS (2)
  1. VFEND [Suspect]
     Active Substance: VORICONAZOLE
     Indication: MYCETOMA MYCOTIC
     Dosage: 200 MG, 3X/DAY
     Route: 048
     Dates: start: 20170111
  2. AMOXICILLIN /00249603/ [Concomitant]
     Active Substance: AMOXICILLIN SODIUM
     Indication: MYCETOMA MYCOTIC
     Dosage: 875 MG, 2X/DAY

REACTIONS (7)
  - Aspergilloma [Recovering/Resolving]
  - Cough [Recovering/Resolving]
  - Night sweats [Unknown]
  - Pyrexia [Unknown]
  - Product use in unapproved indication [Unknown]
  - Haemoptysis [Recovering/Resolving]
  - Pneumothorax spontaneous [Unknown]

NARRATIVE: CASE EVENT DATE: 2017
